FAERS Safety Report 8629635 (Version 5)
Quarter: 2020Q3

REPORT INFORMATION
  Report Type: Report from Study
  Country: US (occurrence: US)
  Receive Date: 20120622
  Receipt Date: 20130510
  Transmission Date: 20201104
  Serious: Yes (Hospitalization)
  Sender: FDA-Public Use
  Company Number: US-JNJFOC-20120608261

PATIENT
  Age: 35 Year
  Sex: Female
  Weight: 65.2 kg

DRUGS (8)
  1. GOLIMUMAB [Suspect]
     Active Substance: GOLIMUMAB
     Indication: COLITIS ULCERATIVE
     Route: 058
     Dates: start: 20120518
  2. ACETAMINOPHEN. [Concomitant]
     Active Substance: ACETAMINOPHEN
     Route: 048
     Dates: start: 20120316, end: 20120521
  3. ANALPRAM HC [Concomitant]
     Active Substance: HYDROCORTISONE ACETATE\PRAMOXINE HYDROCHLORIDE
     Route: 061
     Dates: start: 20100323
  4. BENTYL [Concomitant]
     Active Substance: DICYCLOMINE HYDROCHLORIDE
     Route: 048
     Dates: start: 20101104
  5. TYLENOL [Concomitant]
     Active Substance: ACETAMINOPHEN
     Route: 048
     Dates: start: 20110812
  6. GOLIMUMAB [Suspect]
     Active Substance: GOLIMUMAB
     Indication: COLITIS ULCERATIVE
     Route: 058
     Dates: start: 20100323
  7. AMLODIPINE [Concomitant]
     Active Substance: AMLODIPINE BESYLATE
     Route: 048
     Dates: start: 2008
  8. LO/OVRAL (NORGESTREL, ETHINYL ESTRADIOL) [Concomitant]
     Indication: CONTRACEPTION
     Route: 048
     Dates: start: 2007

REACTIONS (1)
  - Ovarian epithelial cancer [Recovered/Resolved]

NARRATIVE: CASE EVENT DATE: 20120521
